FAERS Safety Report 4394374-8 (Version None)
Quarter: 2004Q3

REPORT INFORMATION
  Report Type: 
  Country: None (occurrence: None)
  Receive Date: 20040712
  Receipt Date: 20040707
  Transmission Date: 20050211
  Serious: Yes (Hospitalization)
  Sender: FDA-Public Use
  Company Number: 200411617DE

PATIENT
  Age: 41 Year
  Sex: Female
  Weight: 78.5 kg

DRUGS (1)
  1. DOCETAXEL [Suspect]
     Indication: BREAST CANCER
     Route: 042
     Dates: start: 20031103, end: 20031103

REACTIONS (3)
  - BONE MARROW DEPRESSION [None]
  - DIZZINESS [None]
  - LEUKOPENIA [None]
